FAERS Safety Report 4845022-1 (Version None)
Quarter: 2005Q4

REPORT INFORMATION
  Report Type: 
  Country: None (occurrence: None)
  Receive Date: 20051205
  Receipt Date: 20051123
  Transmission Date: 20060501
  Serious: Yes (Hospitalization)
  Sender: FDA-Public Use
  Company Number: US-MERCK-0511USA04246

PATIENT
  Age: 58 Year
  Sex: Male
  Weight: 95 kg

DRUGS (8)
  1. VIOXX [Suspect]
     Indication: INTERVERTEBRAL DISC PROTRUSION
     Route: 048
     Dates: start: 19960101
  2. VIOXX [Suspect]
     Route: 048
     Dates: start: 19960101
  3. VIOXX [Suspect]
     Route: 048
     Dates: start: 19960101
  4. VIOXX [Suspect]
     Indication: OSTEOARTHRITIS
     Route: 048
     Dates: start: 19960101
  5. VIOXX [Suspect]
     Route: 048
     Dates: start: 19960101
  6. VIOXX [Suspect]
     Route: 048
     Dates: start: 19960101
  7. AVAPRO [Concomitant]
     Route: 065
  8. MINIPRESS [Concomitant]
     Route: 065

REACTIONS (3)
  - MYOCARDIAL INFARCTION [None]
  - NERVOUSNESS [None]
  - WRONG TECHNIQUE IN DRUG USAGE PROCESS [None]
